FAERS Safety Report 22957433 (Version 2)
Quarter: 2023Q4

REPORT INFORMATION
  Report Type: Report from Study
  Country: US (occurrence: US)
  Receive Date: 20230919
  Receipt Date: 20231024
  Transmission Date: 20240109
  Serious: Yes (Other)
  Sender: FDA-Public Use
  Company Number: US-ARGENX-2023-ARGX-US003105

PATIENT

DRUGS (1)
  1. VYVGART [Suspect]
     Active Substance: EFGARTIGIMOD ALFA-FCAB
     Indication: Myasthenia gravis
     Dosage: 10 MG/KG
     Route: 042

REACTIONS (8)
  - Lung neoplasm malignant [Unknown]
  - Diverticulitis [Unknown]
  - Drug effect less than expected [Unknown]
  - Pulmonary mass [Unknown]
  - Asthenia [Unknown]
  - Bronchitis [Unknown]
  - Gait disturbance [Unknown]
  - Visual impairment [Recovering/Resolving]

NARRATIVE: CASE EVENT DATE: 20230701
